FAERS Safety Report 18427284 (Version 1)
Quarter: 2020Q4

REPORT INFORMATION
  Report Type: Spontaneous
  Country: US (occurrence: US)
  Receive Date: 20201026
  Receipt Date: 20201026
  Transmission Date: 20210114
  Serious: Yes (Death, Other)
  Sender: FDA-Public Use
  Company Number: US-PROCTER_AND_GAMBLE-GS20120718

PATIENT
  Age: 15 Year
  Sex: Female

DRUGS (1)
  1. DIPHENHYDRAMINE HCL [Suspect]
     Active Substance: DIPHENHYDRAMINE HYDROCHLORIDE
     Route: 065

REACTIONS (9)
  - Anion gap increased [Fatal]
  - Coma [Fatal]
  - Metabolic acidosis [Fatal]
  - Tachycardia [Fatal]
  - Electrocardiogram QT prolonged [Fatal]
  - Hypertension [Fatal]
  - Depressed level of consciousness [Fatal]
  - Brain death [Fatal]
  - Anticholinergic syndrome [Fatal]
